FAERS Safety Report 25207048 (Version 6)
Quarter: 2025Q3

REPORT INFORMATION
  Report Type: Report from Study
  Country: US (occurrence: US)
  Receive Date: 20250417
  Receipt Date: 20250813
  Transmission Date: 20251021
  Serious: Yes (Hospitalization, Other)
  Sender: INSMED
  Company Number: US-INSMED-2023-04511-USAA

PATIENT
  Sex: Male

DRUGS (10)
  1. ARIKAYCE [Suspect]
     Active Substance: AMIKACIN
     Indication: Mycobacterium avium complex infection
     Dosage: 590 MILLIGRAM, QD
     Route: 055
     Dates: start: 20231114, end: 20240516
  2. ARIKAYCE [Suspect]
     Active Substance: AMIKACIN
     Dosage: 590 MILLIGRAM, TIW
     Route: 055
     Dates: start: 2024, end: 20240704
  3. ARIKAYCE [Suspect]
     Active Substance: AMIKACIN
     Route: 055
     Dates: start: 20240718, end: 2024
  4. ARIKAYCE [Suspect]
     Active Substance: AMIKACIN
     Route: 055
     Dates: start: 2024, end: 2024
  5. ARIKAYCE [Suspect]
     Active Substance: AMIKACIN
     Route: 055
     Dates: start: 202411
  6. ARIKAYCE [Suspect]
     Active Substance: AMIKACIN
     Dosage: 590 MILLIGRAM, TIW
     Route: 055
  7. ZITHROMAX [Suspect]
     Active Substance: AZITHROMYCIN DIHYDRATE
     Indication: Product used for unknown indication
     Route: 065
     Dates: start: 20241107
  8. AZITHROMYCIN [Concomitant]
     Active Substance: AZITHROMYCIN
     Indication: Product used for unknown indication
     Route: 065
  9. SOTALOL [Concomitant]
     Active Substance: SOTALOL
     Indication: Product used for unknown indication
     Route: 065
  10. BUDESONIDE [Concomitant]
     Active Substance: BUDESONIDE
     Indication: Product used for unknown indication
     Route: 065

REACTIONS (38)
  - Hospitalisation [Unknown]
  - Road traffic accident [Unknown]
  - Witness of death [Unknown]
  - Mental disorder [Unknown]
  - Urinary tract infection [Not Recovered/Not Resolved]
  - Rheumatoid arthritis [Unknown]
  - Atrial fibrillation [Not Recovered/Not Resolved]
  - Pneumonia [Recovered/Resolved]
  - Pneumonia [Unknown]
  - Vision blurred [Unknown]
  - Ocular hyperaemia [Unknown]
  - Impaired quality of life [Not Recovered/Not Resolved]
  - Nasal dryness [Unknown]
  - Dry throat [Unknown]
  - Gait disturbance [Not Recovered/Not Resolved]
  - Drug intolerance [Not Recovered/Not Resolved]
  - Cardiac disorder [Recovering/Resolving]
  - Visual impairment [Unknown]
  - Stress [Unknown]
  - Upper respiratory tract infection [Unknown]
  - Pain [Recovering/Resolving]
  - Night sweats [Unknown]
  - Dyspnoea exertional [Not Recovered/Not Resolved]
  - Fatigue [Not Recovered/Not Resolved]
  - Feeling abnormal [Not Recovered/Not Resolved]
  - Dysphonia [Recovered/Resolved]
  - Cough [Not Recovered/Not Resolved]
  - Myalgia [Not Recovered/Not Resolved]
  - General physical health deterioration [Not Recovered/Not Resolved]
  - Dyspnoea [Recovered/Resolved]
  - Dyspnoea [Recovered/Resolved]
  - Dyspnoea [Not Recovered/Not Resolved]
  - Pyrexia [Unknown]
  - Therapy interrupted [Unknown]
  - Intentional dose omission [Unknown]
  - Product dose omission issue [Unknown]
  - Off label use [Unknown]
  - Device use issue [Unknown]

NARRATIVE: CASE EVENT DATE: 20230101
